FAERS Safety Report 4380694-X (Version None)
Quarter: 2004Q2

REPORT INFORMATION
  Report Type: 
  Country: None (occurrence: None)
  Receive Date: 20040614
  Receipt Date: 20040602
  Transmission Date: 20050107
  Serious: Yes (Other)
  Sender: FDA-Public Use
  Company Number: US-JNJFOC-20040503733

PATIENT
  Age: 70 Year
  Sex: Male
  Weight: 81.6475 kg

DRUGS (11)
  1. LEVAQUIN [Suspect]
     Indication: COUGH
     Dosage: SEE IMAGE, ORAL
     Route: 048
     Dates: start: 20040512, end: 20040514
  2. LEVAQUIN [Suspect]
     Indication: SINUSITIS
     Dosage: SEE IMAGE, ORAL
     Route: 048
     Dates: start: 20040512, end: 20040514
  3. LEVAQUIN [Suspect]
     Indication: COUGH
     Dosage: SEE IMAGE, ORAL
     Route: 048
     Dates: start: 20040515, end: 20040519
  4. LEVAQUIN [Suspect]
     Indication: SINUSITIS
     Dosage: SEE IMAGE, ORAL
     Route: 048
     Dates: start: 20040515, end: 20040519
  5. INDERAL [Concomitant]
  6. ZOCOR [Concomitant]
  7. LASIX [Concomitant]
  8. PLAVIX [Concomitant]
  9. ACETYLSALICYLIC ACID SRT [Concomitant]
  10. NITRODUR PATCH (GLYCERYL TRINITRATE) PATCH [Concomitant]
  11. OMEPRAZOLE [Concomitant]

REACTIONS (1)
  - DIPLOPIA [None]
